FAERS Safety Report 15025540 (Version 4)
Quarter: 2022Q3

REPORT INFORMATION
  Report Type: Report from Study
  Country: US (occurrence: None)
  Receive Date: 20180618
  Receipt Date: 20220801
  Transmission Date: 20221026
  Serious: Yes (Death, Life-Threatening, Hospitalization)
  Sender: FDA-Public Use
  Company Number: 2017SE33622

PATIENT
  Age: 87 Year
  Sex: Male

DRUGS (20)
  1. ACALABRUTINIB [Suspect]
     Active Substance: ACALABRUTINIB
     Indication: Mantle cell lymphoma
     Route: 048
     Dates: start: 20161201
  2. ACALABRUTINIB [Suspect]
     Active Substance: ACALABRUTINIB
     Indication: Mantle cell lymphoma
     Route: 048
     Dates: start: 20161211, end: 20161215
  3. ACALABRUTINIB [Suspect]
     Active Substance: ACALABRUTINIB
     Indication: Mantle cell lymphoma
     Route: 048
     Dates: start: 20161220, end: 20161220
  4. ACALABRUTINIB [Suspect]
     Active Substance: ACALABRUTINIB
     Indication: Mantle cell lymphoma
     Route: 048
     Dates: start: 20170301, end: 20170301
  5. ACALABRUTINIB [Suspect]
     Active Substance: ACALABRUTINIB
     Indication: Mantle cell lymphoma
     Route: 048
     Dates: start: 20170302, end: 20170302
  6. ACALABRUTINIB [Suspect]
     Active Substance: ACALABRUTINIB
     Indication: Mantle cell lymphoma
     Route: 048
     Dates: end: 20170327
  7. BENDAMUSTINE [Suspect]
     Active Substance: BENDAMUSTINE
     Indication: Mantle cell lymphoma
     Dosage: 202.5 MG, DAYS 1 AND 2 OF EACH 28-DAY CYCLE
     Route: 042
     Dates: start: 20161201, end: 20161201
  8. BENDAMUSTINE [Suspect]
     Active Substance: BENDAMUSTINE
     Indication: Mantle cell lymphoma
     Dosage: 157.5 MG, DAYS 1 AND 2 OF EACH 28-DAY CYCLE
     Route: 042
     Dates: start: 20170310, end: 20170310
  9. RITUXIMAB [Suspect]
     Active Substance: RITUXIMAB
     Indication: Mantle cell lymphoma
     Dosage: 850 MG, DAY 1 OF EACH 28-DAY CYCLE
     Route: 042
     Dates: start: 20161201, end: 20161201
  10. RITUXIMAB [Suspect]
     Active Substance: RITUXIMAB
     Indication: Mantle cell lymphoma
     Dosage: 375 MG, DAY 1 OF EACH 28-DAY CYCLE
     Route: 042
     Dates: start: 20170309, end: 20170309
  11. AMIODARONE [Concomitant]
     Active Substance: AMIODARONE
     Indication: Arrhythmia
     Route: 048
     Dates: start: 2013
  12. CLOPIDOGREL [Concomitant]
     Active Substance: CLOPIDOGREL BISULFATE
     Indication: Arrhythmia
     Route: 048
     Dates: start: 2013
  13. ISOSORBIDE MONONITRATE [Concomitant]
     Active Substance: ISOSORBIDE MONONITRATE
     Indication: Arrhythmia
     Route: 048
     Dates: start: 2013
  14. VITAMINS [Concomitant]
     Active Substance: VITAMINS
     Indication: Vitamin supplementation
     Route: 048
     Dates: start: 1956
  15. XARELTO [Concomitant]
     Active Substance: RIVAROXABAN
     Indication: Anticoagulant therapy
     Route: 048
     Dates: start: 2013
  16. PEPTOBISMAL [Concomitant]
     Indication: Nausea
     Dosage: 524.0MG AS REQUIRED
     Route: 048
     Dates: start: 2013
  17. TYLENOL [Concomitant]
     Active Substance: ACETAMINOPHEN
     Indication: Arthritis
     Dosage: 650.0MG AS REQUIRED
     Route: 048
     Dates: start: 1996
  18. MILK OF MAGNESIA [Concomitant]
     Active Substance: MAGNESIUM HYDROXIDE
     Indication: Constipation
     Dosage: 2-4 TABLESPOONS, AS NEEDED
     Route: 048
     Dates: start: 1955
  19. ALLOPURINOL [Concomitant]
     Active Substance: ALLOPURINOL
     Indication: Blood uric acid abnormal
     Route: 048
     Dates: start: 20170205
  20. LASIX [Concomitant]
     Active Substance: FUROSEMIDE
     Indication: Oedema
     Route: 048
     Dates: start: 20170205

REACTIONS (3)
  - Pulmonary alveolar haemorrhage [Recovered/Resolved]
  - Cardiac failure [Recovered/Resolved]
  - Pneumonitis [Fatal]

NARRATIVE: CASE EVENT DATE: 20170327
